FAERS Safety Report 7378727-1 (Version None)
Quarter: 2011Q1

REPORT INFORMATION
  Report Type: 
  Country: None (occurrence: None)
  Receive Date: 20110328
  Receipt Date: 20101007
  Transmission Date: 20110831
  Serious: Yes (Other)
  Sender: FDA-Public Use
  Company Number: US-BAYER-201024230NA

PATIENT
  Sex: Female
  Weight: 74.83 kg

DRUGS (3)
  1. IBUPROF [Concomitant]
  2. YAZ [Suspect]
     Indication: ACNE
     Dosage: 1 DF, QD
     Dates: start: 20080101, end: 20100101
  3. YAZ [Suspect]
     Indication: CONTRACEPTION

REACTIONS (5)
  - DYSPEPSIA [None]
  - CHOLELITHIASIS [None]
  - INJURY [None]
  - ABDOMINAL PAIN [None]
  - CHOLECYSTITIS CHRONIC [None]
